FAERS Safety Report 4675975-6 (Version None)
Quarter: 2005Q2

REPORT INFORMATION
  Report Type: 
  Country: None (occurrence: None)
  Receive Date: 20050527
  Receipt Date: 20050314
  Transmission Date: 20051028
  Serious: No
  Sender: FDA-Public Use
  Company Number: US-GLAXOSMITHKLINE-A0549644A

PATIENT
  Age: 48 Year
  Sex: Female

DRUGS (3)
  1. WELLBUTRIN XL [Suspect]
     Indication: DEPRESSION
     Dosage: 150MG PER DAY
     Route: 048
     Dates: start: 20050303, end: 20050301
  2. MOBIC [Concomitant]
  3. ULTRAM [Concomitant]

REACTIONS (4)
  - DYSPHAGIA [None]
  - GINGIVAL PAIN [None]
  - RASH [None]
  - URTICARIA [None]
